FAERS Safety Report 5700267-3 (Version None)
Quarter: 2008Q2

REPORT INFORMATION
  Report Type: 
  Country: None (occurrence: None)
  Receive Date: 20080407
  Receipt Date: 20080325
  Transmission Date: 20081010
  Serious: Yes (Death, Hospitalization)
  Sender: FDA-Public Use
  Company Number: US023077

PATIENT
  Age: 27 Year
  Sex: Female

DRUGS (1)
  1. ARSENIC TRIOXIDE [Suspect]
     Indication: ACUTE PROMYELOCYTIC LEUKAEMIA
     Dosage: 0.15 MG/KG QD INTRAVENOUS
     Route: 042

REACTIONS (15)
  - BRAIN HERNIATION [None]
  - BRAIN OEDEMA [None]
  - CEREBRAL INFARCTION [None]
  - CEREBROVASCULAR DISORDER [None]
  - CONFUSIONAL STATE [None]
  - CONVULSION [None]
  - DISEASE COMPLICATION [None]
  - DISSEMINATED INTRAVASCULAR COAGULATION [None]
  - DYSARTHRIA [None]
  - GENERAL PHYSICAL HEALTH DETERIORATION [None]
  - LEUKOCYTOSIS [None]
  - LEUKOSTASIS [None]
  - MUSCULAR WEAKNESS [None]
  - PLATELET COUNT DECREASED [None]
  - PYREXIA [None]
